FAERS Safety Report 16573288 (Version 1)
Quarter: 2019Q3

REPORT INFORMATION
  Report Type: Spontaneous
  Country: DE (occurrence: DE)
  Receive Date: 20190715
  Receipt Date: 20190715
  Transmission Date: 20191004
  Serious: Yes (Hospitalization)
  Sender: FDA-Public Use
  Company Number: DE-TEVA-2019-DE-1076724

PATIENT
  Age: 74 Year
  Sex: Female

DRUGS (6)
  1. MORPHIN [Concomitant]
     Active Substance: MORPHINE
     Dosage: NK MG, NK
  2. LEVOTHYROXINE SODIUM. [Concomitant]
     Active Substance: LEVOTHYROXINE SODIUM
     Dosage: 50 ?G, 1-0-0-0
  3. CORTISON [Concomitant]
     Active Substance: CORTISONE ACETATE
     Dosage: NK MG, 14 D
  4. FLUOROURACIL. [Suspect]
     Active Substance: FLUOROURACIL
     Dosage: NK MG, MOST RECENTLY 4 WEEKS AGO
     Route: 065
  5. FORMOTEROL/BUDESONID [Concomitant]
     Dosage: NK ?G, 1-0-1-0
     Route: 055
  6. TIOTROPIUM BROMIDE [Concomitant]
     Active Substance: TIOTROPIUM BROMIDE
     Dosage: NK ?G, 2-0-0-0
     Route: 055

REACTIONS (1)
  - Dyspnoea [Unknown]

NARRATIVE: CASE EVENT DATE: 20171014
